FAERS Safety Report 9220156 (Version 1)
Quarter: 2013Q2

REPORT INFORMATION
  Report Type: Spontaneous
  Country: US (occurrence: None)
  Receive Date: 20130408
  Receipt Date: 20130408
  Transmission Date: 20140414
  Serious: No
  Sender: FDA-Public Use
  Company Number: None

PATIENT
  Age: 33 Year
  Sex: Male
  Weight: 68.95 kg

DRUGS (1)
  1. AMOXICILLIN [Suspect]
     Indication: COUGH
     Dates: start: 20130326, end: 20130404

REACTIONS (1)
  - Drug ineffective [None]
